FAERS Safety Report 6732497-6 (Version None)
Quarter: 2010Q2

REPORT INFORMATION
  Report Type: 
  Country: None (occurrence: None)
  Receive Date: 20100519
  Receipt Date: 20100510
  Transmission Date: 20101027
  Serious: Yes (Other)
  Sender: FDA-Public Use
  Company Number: US-ELI_LILLY_AND_COMPANY-US201004006564

PATIENT
  Sex: Female
  Weight: 72.562 kg

DRUGS (4)
  1. ADCIRCA [Suspect]
     Dosage: 1 D/F, UNK
     Dates: start: 20091223
  2. FUROSEMIDE [Concomitant]
  3. SPIRONOLACTONE [Concomitant]
  4. SEROQUEL [Concomitant]
     Dosage: 50 MG, 3/D

REACTIONS (5)
  - BLINDNESS [None]
  - DIPLOPIA [None]
  - STRABISMUS [None]
  - VISUAL ACUITY REDUCED [None]
  - VISUAL IMPAIRMENT [None]
